FAERS Safety Report 7943381-4 (Version None)
Quarter: 2011Q4

REPORT INFORMATION
  Report Type: 
  Country: None (occurrence: None)
  Receive Date: 20111128
  Receipt Date: 20111118
  Transmission Date: 20120403
  Serious: Yes (Hospitalization)
  Sender: FDA-Public Use
  Company Number: US-BAYER-200823100NA

PATIENT
  Age: 46 Year
  Sex: Female
  Weight: 81.818 kg

DRUGS (4)
  1. LEXAPRO [Concomitant]
     Indication: PRODUCT USED FOR UNKNOWN INDICATION
     Dosage: 10/20 MG
     Route: 048
  2. YAZ [Suspect]
     Indication: PREMENSTRUAL SYNDROME
     Dosage: UNK
     Dates: start: 20080201, end: 20080401
  3. BENICAR [Concomitant]
     Indication: PRODUCT USED FOR UNKNOWN INDICATION
     Dates: start: 20080321
  4. YAZ [Suspect]
     Indication: MENOPAUSAL SYMPTOMS
     Dosage: 1 DF (DAILY DOSE), ,
     Dates: start: 20071206, end: 20080322

REACTIONS (10)
  - OEDEMA PERIPHERAL [None]
  - DEPRESSION [None]
  - THROMBOSIS [None]
  - GROIN PAIN [None]
  - PAIN IN EXTREMITY [None]
  - SKIN DISCOLOURATION [None]
  - ANXIETY [None]
  - DEEP VEIN THROMBOSIS [None]
  - HEADACHE [None]
  - HYPERTENSION [None]
